FAERS Safety Report 16785441 (Version 1)
Quarter: 2019Q3

REPORT INFORMATION
  Report Type: Spontaneous
  Country: AU (occurrence: AU)
  Receive Date: 20190909
  Receipt Date: 20190909
  Transmission Date: 20191005
  Serious: Yes (Hospitalization)
  Sender: FDA-Public Use
  Company Number: AU-AMGEN-AUSSP2019142835

PATIENT
  Sex: Female

DRUGS (13)
  1. LAMISIL [Concomitant]
     Active Substance: TERBINAFINE HYDROCHLORIDE
     Dosage: UNK
  2. SYSTANE LUBRICANT [Concomitant]
     Active Substance: POLYETHYLENE GLYCOL 400\PROPYLENE GLYCOL
     Dosage: 1 DROP BOTH EYES, QID
  3. CALTRATE BONE HEALTH [Concomitant]
     Active Substance: CALCIUM\CHOLECALCIFEROL
     Dosage: 600 MG-12.5 MCG, QD
     Route: 048
  4. CETIRIZINE [Concomitant]
     Active Substance: CETIRIZINE HYDROCHLORIDE
     Dosage: 10 MILLIGRAM, QD
     Route: 048
  5. SALBUTAMOL [Concomitant]
     Active Substance: ALBUTEROL
     Dosage: 100 MCG/INH, Q4H
  6. PROLIA [Suspect]
     Active Substance: DENOSUMAB
     Indication: OSTEOPOROSIS POSTMENOPAUSAL
     Dosage: 60 MILLIGRAM PER MILLILITRE, Q6MO
     Route: 058
  7. OXAZEPAM. [Concomitant]
     Active Substance: OXAZEPAM
     Dosage: 15 MILLIGRAM, QD
     Route: 048
  8. PANADOL [Concomitant]
     Active Substance: ACETAMINOPHEN
     Dosage: 665 MILLIGRAM, TID
     Route: 048
  9. PERINDOPRIL ARGININE [Concomitant]
     Active Substance: PERINDOPRIL ARGININE
     Dosage: 5 MILLIGRAM, QD
     Route: 048
  10. VENLAFAXINE [Concomitant]
     Active Substance: VENLAFAXINE HYDROCHLORIDE
     Dosage: 150 MILLIGRAM, QD
     Route: 048
  11. ENOXAPARIN [Concomitant]
     Active Substance: ENOXAPARIN
     Indication: THROMBOSIS PROPHYLAXIS
     Dosage: 40 MILLIGRAM, QD
  12. PREGABALIN. [Concomitant]
     Active Substance: PREGABALIN
     Dosage: 300 MILLIGRAM, BID
     Route: 048
  13. GABAPENTIN. [Concomitant]
     Active Substance: GABAPENTIN
     Dosage: 300 MILLIGRAM, BID

REACTIONS (4)
  - Head injury [Unknown]
  - Confusional state [Unknown]
  - Thermal burn [Unknown]
  - Fall [Unknown]
